FAERS Safety Report 14094680 (Version 1)
Quarter: 2017Q4

REPORT INFORMATION
  Report Type: Spontaneous
  Country: US (occurrence: US)
  Receive Date: 20171016
  Receipt Date: 20171016
  Transmission Date: 20180321
  Serious: No
  Sender: FDA-Public Use
  Company Number: US-AMGEN-USASP2017023899

PATIENT
  Age: 47 Year
  Sex: Female

DRUGS (3)
  1. THYROID [Concomitant]
     Active Substance: LEVOTHYROXINE\LIOTHYRONINE
  2. INSULIN [Concomitant]
     Active Substance: INSULIN NOS
  3. PROLIA [Suspect]
     Active Substance: DENOSUMAB
     Indication: OSTEOPOROSIS POSTMENOPAUSAL
     Dosage: UNK
     Route: 065
     Dates: start: 20161102

REACTIONS (12)
  - Dizziness [Unknown]
  - Back pain [Unknown]
  - Myalgia [Unknown]
  - Bone pain [Unknown]
  - Malaise [Not Recovered/Not Resolved]
  - Neuropathy peripheral [Unknown]
  - Pain in extremity [Unknown]
  - Sleep disorder [Unknown]
  - Arthralgia [Unknown]
  - Amnesia [Unknown]
  - Confusional state [Unknown]
  - Carpal tunnel syndrome [Unknown]

NARRATIVE: CASE EVENT DATE: 201612
